FAERS Safety Report 14401440 (Version 3)
Quarter: 2018Q1

REPORT INFORMATION
  Report Type: Spontaneous
  Country: US (occurrence: US)
  Receive Date: 20180117
  Receipt Date: 20180309
  Transmission Date: 20180509
  Serious: No
  Sender: FDA-Public Use
  Company Number: US-PFIZER INC-2018018559

PATIENT
  Age: 51 Year
  Sex: Female

DRUGS (1)
  1. XELJANZ XR [Suspect]
     Active Substance: TOFACITINIB CITRATE
     Dosage: 11 MG, UNK
     Dates: start: 201703

REACTIONS (5)
  - Chronic sinusitis [Unknown]
  - Limb injury [Unknown]
  - Pyrexia [Unknown]
  - Ear pain [Unknown]
  - Upper respiratory tract infection [Unknown]
